FAERS Safety Report 6699812-3 (Version None)
Quarter: 2010Q2

REPORT INFORMATION
  Report Type: 
  Country: None (occurrence: None)
  Receive Date: 20100428
  Receipt Date: 20090529
  Transmission Date: 20101027
  Serious: No
  Sender: FDA-Public Use
  Company Number: A0829533A

PATIENT
  Sex: Male

DRUGS (1)
  1. LUXIQ [Suspect]
     Indication: DRUG USE FOR UNKNOWN INDICATION
     Dates: start: 20080101

REACTIONS (2)
  - APPLICATION SITE PAIN [None]
  - OFF LABEL USE [None]
